FAERS Safety Report 8237997 (Version 2)
Quarter: 2013Q4

REPORT INFORMATION
  Report Type: Spontaneous
  Country: US (occurrence: US)
  Receive Date: 20111109
  Receipt Date: 20131204
  Transmission Date: 20140711
  Serious: Yes (Other)
  Sender: FDA-Public Use
  Company Number: US-GLAXOSMITHKLINE-A0915659A

PATIENT
  Age: 68 Year
  Sex: Male
  Weight: 98.2 kg

DRUGS (1)
  1. AVANDIA [Suspect]
     Indication: DIABETES MELLITUS
     Dosage: 4MG PER DAY
     Route: 048
     Dates: start: 199901, end: 201101

REACTIONS (5)
  - Cardiac failure congestive [Unknown]
  - Cough [Unknown]
  - Chest pain [Unknown]
  - Ill-defined disorder [Unknown]
  - Renal failure acute [Unknown]
